FAERS Safety Report 25233359 (Version 1)
Quarter: 2025Q2

REPORT INFORMATION
  Report Type: Spontaneous
  Country: IT (occurrence: IT)
  Receive Date: 20250424
  Receipt Date: 20250424
  Transmission Date: 20250717
  Serious: Yes (Death)
  Sender: ABBVIE
  Company Number: IT-PFIZER INC-PV202500047797

PATIENT

DRUGS (1)
  1. AVIBACTAM SODIUM [Suspect]
     Active Substance: AVIBACTAM SODIUM
     Indication: Klebsiella infection
     Route: 042

REACTIONS (1)
  - Death [Fatal]
